FAERS Safety Report 10449594 (Version 1)
Quarter: 2014Q3

REPORT INFORMATION
  Report Type: Spontaneous
  Country: IT (occurrence: IT)
  Receive Date: 20140912
  Receipt Date: 20140912
  Transmission Date: 20150326
  Serious: Yes (Hospitalization)
  Sender: FDA-Public Use
  Company Number: IT-TEVA-507505ISR

PATIENT
  Age: 58 Year
  Sex: Male

DRUGS (4)
  1. CYMBALTA [Concomitant]
     Active Substance: DULOXETINE HYDROCHLORIDE
  2. CARBOLITHIUM [Suspect]
     Active Substance: LITHIUM CARBONATE
     Indication: BIPOLAR DISORDER
     Dosage: 900 MILLIGRAM DAILY;
     Route: 048
     Dates: start: 20130721, end: 20140721
  3. SEROQUEL [Concomitant]
     Active Substance: QUETIAPINE FUMARATE
  4. BUPROPIONE [Concomitant]
     Dates: start: 20140626, end: 20140715

REACTIONS (5)
  - Poisoning [Unknown]
  - Movement disorder [Unknown]
  - Sinus bradycardia [Unknown]
  - Tremor [Unknown]
  - Depressed level of consciousness [Unknown]

NARRATIVE: CASE EVENT DATE: 20140721
